FAERS Safety Report 8305592-8 (Version None)
Quarter: 2012Q2

REPORT INFORMATION
  Report Type: 
  Country: None (occurrence: None)
  Receive Date: 20120423
  Receipt Date: 20120321
  Transmission Date: 20120825
  Serious: Yes (Death)
  Sender: FDA-Public Use
  Company Number: US-PERRIGO-12US002395

PATIENT
  Sex: Male
  Weight: 126.98 kg

DRUGS (1)
  1. NAPROXEN SODIUM [Suspect]
     Indication: TOOTHACHE
     Dosage: 440 MG, SINGLE
     Route: 048
     Dates: start: 20120212, end: 20120212

REACTIONS (11)
  - GENERALISED OEDEMA [None]
  - HYPERSENSITIVITY [None]
  - COMA [None]
  - UPPER AIRWAY OBSTRUCTION [None]
  - RESTLESSNESS [None]
  - LOSS OF CONSCIOUSNESS [None]
  - OEDEMA MOUTH [None]
  - ERYTHEMA [None]
  - PHARYNGEAL OEDEMA [None]
  - MALAISE [None]
  - SWELLING FACE [None]
